FAERS Safety Report 5430607-4 (Version None)
Quarter: 2007Q3

REPORT INFORMATION
  Report Type: 
  Country: None (occurrence: None)
  Receive Date: 20070828
  Receipt Date: 20070820
  Transmission Date: 20080115
  Serious: Yes (Hospitalization)
  Sender: FDA-Public Use
  Company Number: L07-JPN-03159-01

PATIENT
  Age: 51 Year
  Sex: Female
  Weight: 49 kg

DRUGS (4)
  1. THEOPHYLLINE [Suspect]
     Indication: ASTHMA
     Dosage: 200 MG QD
     Dates: start: 19980101
  2. PREDNISOLONE [Concomitant]
  3. CALCIUM LACTATE (CALCIUM LACTATE) (CALCIUM LACTATE) [Concomitant]
  4. ALFACALCIDOL (ALFACALCIDOL) [Concomitant]

REACTIONS (12)
  - AUTOIMMUNE THYROIDITIS [None]
  - HEADACHE [None]
  - HYPERCALCAEMIA [None]
  - HYPERTHYROIDISM [None]
  - LORDOSIS [None]
  - MULTIPLE FRACTURES [None]
  - NAUSEA [None]
  - NO THERAPEUTIC RESPONSE [None]
  - OSTEOMALACIA [None]
  - PUBIC RAMI FRACTURE [None]
  - RENAL FAILURE [None]
  - VITAMIN D DECREASED [None]
